FAERS Safety Report 4464523-1 (Version None)
Quarter: 2004Q3

REPORT INFORMATION
  Report Type: 
  Country: None (occurrence: None)
  Receive Date: 20040929
  Receipt Date: 20040913
  Transmission Date: 20050211
  Serious: Yes (Hospitalization)
  Sender: FDA-Public Use
  Company Number: 2004-DE-04821DE

PATIENT
  Age: 21 Year
  Sex: Male

DRUGS (5)
  1. ATROVENT INHALATION (IPRATROPIUM BROMIDE) (KAI) [Suspect]
     Route: 048
  2. THEOPHYLLIN STADA 200 RETARD (TA) [Suspect]
     Dosage: 4000 MG (200 MG,1 X 20 TABLETS)
     Route: 048
  3. ASPIRIN [Suspect]
     Dosage: 4000 MG (NR)
     Route: 048
  4. FORADIL [Suspect]
     Dosage: 20 ANZ (NR,1X 20)
  5. JOD-THYROXIN 50 (TA) [Suspect]
     Dosage: 1 MG (0L.05 MG, 1X20 TABLETS)
     Route: 048

REACTIONS (4)
  - DRUG ABUSER [None]
  - MULTIPLE DRUG OVERDOSE INTENTIONAL [None]
  - SUICIDE ATTEMPT [None]
  - VOMITING [None]
